FAERS Safety Report 5499730-2 (Version None)
Quarter: 2007Q4

REPORT INFORMATION
  Report Type: 
  Country: None (occurrence: None)
  Receive Date: 20071026
  Receipt Date: 20070928
  Transmission Date: 20080405
  Serious: No
  Sender: FDA-Public Use
  Company Number: US-BOEHRINGER INGELHEIM PHARMACEUTICALS, INC.-2006-BP-08097BP

PATIENT
  Sex: Female

DRUGS (71)
  1. MIRAPEX [Suspect]
     Indication: RESTLESS LEGS SYNDROME
     Dates: start: 20000601, end: 20050801
  2. MIRAPEX [Suspect]
     Route: 048
     Dates: start: 20051001, end: 20060101
  3. METROGEL-VAGINAL [Concomitant]
     Dates: start: 20041201
  4. CHLORHEXIDINE GLUCONATE [Concomitant]
     Dates: start: 20041101
  5. HYDROCODONE BITARTRATE AND IBUPROFEN [Concomitant]
     Dates: start: 20041101
  6. CEPHALEXIN [Concomitant]
     Dates: start: 20041101
  7. BIAXIN XL [Concomitant]
     Dates: start: 20040901
  8. TOBRAMYCIN [Concomitant]
     Dates: start: 20040901
  9. PROMETHAZINE W/ CODEINE [Concomitant]
     Dates: start: 20040901
  10. VALTREX [Concomitant]
     Indication: ORAL HERPES
     Dates: start: 20040701
  11. CIPROFLOXACIN [Concomitant]
     Indication: PYELONEPHRITIS
     Dates: start: 20040701
  12. BACTRIM DS [Concomitant]
     Dates: start: 20040701
  13. SEROQUEL [Concomitant]
     Dates: start: 20050901
  14. OXYCODONE AND ACETAMINOPHEN [Concomitant]
     Dates: start: 20050801
  15. ALPRAZOLAM [Concomitant]
     Indication: RESTLESS LEGS SYNDROME
     Dates: start: 20050801
  16. CARB/LEVO [Concomitant]
     Dates: start: 20050101
  17. NATALCARE PLUS [Concomitant]
     Dates: start: 20050801
  18. ZITHROMAX [Concomitant]
     Dates: start: 20050801
  19. AMBIEN [Concomitant]
     Dates: start: 20050301
  20. FUROSEMIDE [Concomitant]
     Dates: start: 20050701
  21. CLONAZEPAM [Concomitant]
     Indication: RESTLESS LEGS SYNDROME
     Dates: start: 20021101
  22. CLONAZEPAM [Concomitant]
     Indication: SLEEP DISORDER
  23. ESTRADIOL [Concomitant]
     Dates: start: 19890101
  24. ZAROXOLYN [Concomitant]
     Dates: start: 20021201
  25. BUT/APAP/CAF [Concomitant]
     Indication: HEADACHE
     Dates: start: 20030301
  26. PROPOXY/APAP [Concomitant]
     Dates: start: 20030501
  27. ETODOLAC ER [Concomitant]
     Dates: start: 20030501
  28. NAPROXEN [Concomitant]
     Dates: start: 20030301
  29. ACETAMINOPHEN AND HYDROCODONE BITARTRATE [Concomitant]
     Dates: start: 20030301
  30. ACETAMINOPHEN AND HYDROCODONE BITARTRATE [Concomitant]
     Dates: start: 20060701
  31. TORSEMIDE [Concomitant]
     Dates: start: 20030201
  32. ZOLOFT [Concomitant]
     Indication: DEPRESSION
     Route: 048
     Dates: start: 20001114, end: 20050125
  33. POTASSIUM CHLORIDE [Concomitant]
     Dates: start: 20030101
  34. PROVIGIL [Concomitant]
     Dates: start: 20031201
  35. METOLAZONE [Concomitant]
     Route: 048
     Dates: start: 20040301
  36. FEROCON [Concomitant]
     Dates: start: 20031201
  37. MEDROXYPR AC [Concomitant]
     Dates: start: 20021201
  38. MOBIC [Concomitant]
     Dates: start: 20041101
  39. GABAPENTIN [Concomitant]
     Dates: start: 20041001
  40. GEODON [Concomitant]
     Dates: start: 20050601
  41. TRIAMTERENE AND HYDROCHLOROTHIAZIDE [Concomitant]
     Dates: start: 20050601
  42. TEMAZEPAM [Concomitant]
     Dates: start: 20050301
  43. BENZTROPINE [Concomitant]
     Dates: start: 20050101
  44. ALBUTEROL [Concomitant]
     Dates: start: 20050101
  45. RISPERDAL [Concomitant]
     Dates: start: 20050101
  46. LYRICA [Concomitant]
     Dates: start: 20060101
  47. REQUIP [Concomitant]
     Indication: RESTLESS LEGS SYNDROME
     Dates: start: 20050901
  48. PHENAZOPYRIDINE HCL TAB [Concomitant]
     Dates: start: 20060901
  49. NITROFURAN [Concomitant]
     Dates: start: 20060901
  50. HISTINEX HC [Concomitant]
     Dates: start: 20061101
  51. SERTRALINE [Concomitant]
     Dates: start: 20061101
  52. DERMADEX [Concomitant]
  53. K-DUR 10 [Concomitant]
  54. BUTAPAP [Concomitant]
     Indication: HEADACHE
  55. CELEBREX [Concomitant]
     Indication: ARTHRITIS
  56. ESTRACE [Concomitant]
     Indication: OESTROGEN THERAPY
     Route: 048
  57. PROVERA [Concomitant]
     Indication: HORMONE REPLACEMENT THERAPY
     Route: 048
  58. CLARITIN [Concomitant]
     Indication: HYPERSENSITIVITY
     Route: 048
  59. ESGIC-PLUS [Concomitant]
     Indication: HEADACHE
     Route: 048
  60. NORTRIPTYLINE HCL [Concomitant]
     Indication: PROPHYLAXIS
     Route: 048
  61. AMERGE [Concomitant]
     Indication: HEADACHE
  62. TOBREX [Concomitant]
  63. NEURONTIN [Concomitant]
  64. ESTRACE [Concomitant]
     Dates: start: 20000101
  65. ADVAIR DISKUS 100/50 [Concomitant]
     Dates: start: 20050208
  66. MAXZIDE [Concomitant]
     Indication: OEDEMA
     Dates: start: 20050101
  67. TEN-K [Concomitant]
     Route: 048
     Dates: start: 20050707
  68. LUNESTA [Concomitant]
     Route: 048
     Dates: start: 20050707
  69. NIRAVAM [Concomitant]
     Dates: start: 20050803
  70. AVELOX [Concomitant]
     Dates: start: 20020722
  71. ZYPREXA [Concomitant]
     Route: 048
     Dates: start: 20050118

REACTIONS (6)
  - ANXIETY DISORDER [None]
  - BIPOLAR DISORDER [None]
  - BIPOLAR I DISORDER [None]
  - DEPRESSION [None]
  - OBSESSIVE-COMPULSIVE DISORDER [None]
  - PATHOLOGICAL GAMBLING [None]
